FAERS Safety Report 21966629 (Version 1)
Quarter: 2023Q1

REPORT INFORMATION
  Report Type: Spontaneous
  Country: ES (occurrence: ES)
  Receive Date: 20230208
  Receipt Date: 20230208
  Transmission Date: 20230417
  Serious: Yes (Hospitalization, Other)
  Sender: FDA-Public Use
  Company Number: ES-Accord-299218

PATIENT
  Age: 45 Year
  Sex: Female

DRUGS (4)
  1. MYCOPHENOLIC ACID [Suspect]
     Active Substance: MYCOPHENOLIC ACID
     Indication: Immunosuppressant drug therapy
     Dosage: 500 MG AT BREAKFAST AND 250 MG AT DINNER
     Dates: start: 2019
  2. TACROLIMUS [Suspect]
     Active Substance: TACROLIMUS
     Indication: Immunosuppressant drug therapy
     Dosage: 9 MG AT BREAKFAST AND 8.5 MG AT DINNER
     Dates: start: 2019
  3. PREDNISONE [Suspect]
     Active Substance: PREDNISONE
     Indication: Immunosuppressant drug therapy
     Dosage: 5 MG DAILY
     Dates: start: 2019
  4. INSULIN NOS [Concomitant]
     Active Substance: INSULIN NOS
     Indication: Type 2 diabetes mellitus

REACTIONS (4)
  - Fungal infection [Recovered/Resolved]
  - Breast abscess [Recovered/Resolved]
  - Viruria [Unknown]
  - BK virus infection [Unknown]

NARRATIVE: CASE EVENT DATE: 20210101
